FAERS Safety Report 5139501-X (Version None)
Quarter: 2006Q4

REPORT INFORMATION
  Report Type: 
  Country: None (occurrence: None)
  Receive Date: 20061030
  Receipt Date: 20060418
  Transmission Date: 20070319
  Serious: Yes (Death)
  Sender: FDA-Public Use
  Company Number: US-BOEHRINGER INGELHEIM GMBH, GERMANY-2006-DE-01957GD

PATIENT
  Age: 52 Year
  Sex: Male

DRUGS (5)
  1. NEVIRAPINE [Suspect]
     Indication: HIV INFECTION
     Dates: start: 20001101, end: 20010901
  2. LAMIVUDINE [Suspect]
     Indication: HIV INFECTION
     Dates: start: 20001101, end: 20010901
  3. ABACAVIR [Suspect]
     Indication: HIV INFECTION
     Dates: start: 20001101, end: 20010901
  4. AMPRENAVIR [Suspect]
     Indication: HIV INFECTION
     Dates: start: 20001101, end: 20010901
  5. LOPINAVIR/R [Suspect]
     Indication: HIV INFECTION
     Route: 048
     Dates: start: 20001101, end: 20010901

REACTIONS (8)
  - AGITATION [None]
  - AIDS DEMENTIA COMPLEX [None]
  - CEREBRAL ATROPHY [None]
  - IMMUNE RECONSTITUTION SYNDROME [None]
  - INCONTINENCE [None]
  - LEUKOENCEPHALOPATHY [None]
  - NEUROLOGICAL SYMPTOM [None]
  - PARKINSONISM [None]
